FAERS Safety Report 21941011 (Version 1)
Quarter: 2023Q1

REPORT INFORMATION
  Report Type: Spontaneous
  Country: AU (occurrence: AU)
  Receive Date: 20230202
  Receipt Date: 20230202
  Transmission Date: 20230418
  Serious: No
  Sender: FDA-Public Use
  Company Number: AU-EXELIXIS-CABO-22052674

PATIENT
  Sex: Female

DRUGS (7)
  1. CABOMETYX [Suspect]
     Active Substance: CABOZANTINIB S-MALATE
     Indication: Thyroid cancer metastatic
     Dosage: 60 MG, QD
     Route: 048
     Dates: start: 20220620
  2. CABOMETYX [Suspect]
     Active Substance: CABOZANTINIB S-MALATE
     Dosage: 40 MG
     Route: 048
     Dates: start: 20220711
  3. THYROXINE [Concomitant]
     Active Substance: LEVOTHYROXINE
  4. TELMISARTAN [Concomitant]
     Active Substance: TELMISARTAN
  5. AMLODIPINE [Concomitant]
     Active Substance: AMLODIPINE BESYLATE
  6. VITAMIN D [Concomitant]
     Active Substance: VITAMIN D NOS
  7. RIVAROXABAN [Concomitant]
     Active Substance: RIVAROXABAN

REACTIONS (6)
  - Liver function test abnormal [Recovering/Resolving]
  - Gastrooesophageal reflux disease [Recovering/Resolving]
  - Fatigue [Not Recovered/Not Resolved]
  - Decreased appetite [Not Recovered/Not Resolved]
  - Dysgeusia [Not Recovered/Not Resolved]
  - Off label use [Unknown]
